FAERS Safety Report 9558799 (Version 2)
Quarter: 2013Q4

REPORT INFORMATION
  Report Type: Spontaneous
  Country: US (occurrence: US)
  Receive Date: 20130926
  Receipt Date: 20131014
  Transmission Date: 20140711
  Serious: Yes (Other)
  Sender: FDA-Public Use
  Company Number: US-RB-058723-13

PATIENT
  Sex: Male

DRUGS (3)
  1. SUBOXONE TABLET [Suspect]
     Indication: PAIN
     Route: 060
     Dates: start: 2008, end: 201309
  2. SUBOXONE FILM [Suspect]
     Indication: PAIN
     Dosage: SUBOXONE FILM; CUTTING THE FILM AND TAKING LESS THAN PRESCRIBED
     Route: 060
     Dates: start: 201309
  3. OXYCODONE [Suspect]
     Indication: PAIN
     Route: 048
     Dates: start: 2008

REACTIONS (10)
  - Off label use [Not Recovered/Not Resolved]
  - Malaise [Recovered/Resolved]
  - Weight decreased [Recovered/Resolved]
  - Heart valve incompetence [Not Recovered/Not Resolved]
  - Crohn^s disease [Recovered/Resolved]
  - Hypotension [Recovered/Resolved]
  - Haemangioma [Recovered/Resolved]
  - Wrong technique in drug usage process [Not Recovered/Not Resolved]
  - Underdose [Not Recovered/Not Resolved]
  - Weight increased [Unknown]
